FAERS Safety Report 12288281 (Version 3)
Quarter: 2016Q2

REPORT INFORMATION
  Report Type: Report from Study
  Country: PL (occurrence: PL)
  Receive Date: 20160420
  Receipt Date: 20160524
  Transmission Date: 20160815
  Serious: Yes (Hospitalization)
  Sender: FDA-Public Use
  Company Number: PL-KADMON PHARMACEUTICALS, LLC-KAD201604-001417

PATIENT
  Age: 57 Year
  Sex: Female
  Weight: 62 kg

DRUGS (10)
  1. RIBAVIRIN. [Suspect]
     Active Substance: RIBAVIRIN
     Indication: CHRONIC HEPATITIS C
     Dosage: TABLET
     Route: 048
     Dates: start: 20160302, end: 20160330
  2. XIFAXAN [Concomitant]
     Active Substance: RIFAXIMIN
     Dates: start: 20160407
  3. RIBAVIRIN. [Suspect]
     Active Substance: RIBAVIRIN
     Dosage: TABLET
     Route: 048
     Dates: start: 20160330, end: 20160511
  4. PROPRANOLOL [Concomitant]
     Active Substance: PROPRANOLOL\PROPRANOLOL HYDROCHLORIDE
  5. HEPAMERZ [Concomitant]
     Active Substance: ORNITHINE ASPARTATE
     Dates: start: 20160407
  6. SPIRONOL [Concomitant]
     Active Substance: SPIRONOLACTONE
  7. KALIPOZ [Concomitant]
     Active Substance: POTASSIUM CHLORIDE
  8. VIEKIRAX [Suspect]
     Active Substance: OMBITASVIR\PARITAPREVIR\RITONAVIR
     Indication: CHRONIC HEPATITIS C
     Route: 048
     Dates: start: 20160302
  9. FOLIC ACID. [Concomitant]
     Active Substance: FOLIC ACID
  10. EXVIERA [Suspect]
     Active Substance: DASABUVIR
     Indication: CHRONIC HEPATITIS C
     Route: 048
     Dates: start: 20160302

REACTIONS (3)
  - Hepatic failure [Not Recovered/Not Resolved]
  - Hyperbilirubinaemia [Unknown]
  - Hyperbilirubinaemia [Unknown]

NARRATIVE: CASE EVENT DATE: 20160330
